FAERS Safety Report 8371982 (Version 2)
Quarter: 2013Q1

REPORT INFORMATION
  Report Type: Report from Study
  Country: PR (occurrence: PR)
  Receive Date: 20120129
  Receipt Date: 20130130
  Transmission Date: 20140127
  Serious: Yes (Hospitalization, Other)
  Sender: FDA-Public Use
  Company Number: PR-ABBOTT-11P-131-0882513-00

PATIENT
  Age: 47 Year
  Sex: Female

DRUGS (13)
  1. HUMIRA 40 MG/0.8 ML PEN [Suspect]
     Indication: RHEUMATOID ARTHRITIS
     Route: 058
     Dates: start: 20110929, end: 20111125
  2. HUMIRA 40 MG/0.8 ML PEN [Suspect]
     Route: 058
     Dates: start: 20120104
  3. AVAPRO [Concomitant]
     Indication: HYPERTENSION
     Dates: start: 201109
  4. PREDNISONE [Concomitant]
     Indication: RHEUMATOID ARTHRITIS
     Dates: start: 201011
  5. HYDROCHLOROTHIAZIDE [Concomitant]
     Indication: HYPERTENSION
     Dates: start: 201109
  6. FOSAMAX [Concomitant]
     Indication: OSTEOPENIA
     Dates: start: 201109
  7. PLAQUENIL [Concomitant]
     Indication: RHEUMATOID ARTHRITIS
     Dates: start: 200911
  8. SYNTHROID [Concomitant]
     Indication: THYROID OPERATION
     Dates: start: 2000
  9. ARAVA [Concomitant]
     Indication: RHEUMATOID ARTHRITIS
     Dates: start: 201011
  10. FLEXERIL [Concomitant]
     Indication: FIBROMYALGIA
     Dates: start: 20110309
  11. NEURONTIN [Concomitant]
     Indication: FIBROMYALGIA
     Dates: start: 20110601
  12. CATAFLAM [Concomitant]
     Indication: RHEUMATOID ARTHRITIS
     Dates: start: 20110309
  13. AMBIEN [Concomitant]
     Indication: INSOMNIA
     Dates: start: 20101130

REACTIONS (3)
  - Hypertension [Recovered/Resolved]
  - Appendicitis [Recovered/Resolved]
  - Pneumonia [Recovered/Resolved]
